FAERS Safety Report 8115691-1 (Version None)
Quarter: 2012Q1

REPORT INFORMATION
  Report Type: 
  Country: None (occurrence: None)
  Receive Date: 20120206
  Receipt Date: 20120130
  Transmission Date: 20120608
  Serious: No
  Sender: FDA-Public Use
  Company Number: US-B.I. PHARMACEUTICALS,INC./RIDGEFIELD-2012-BP-01824BP

PATIENT
  Sex: Male

DRUGS (6)
  1. OPHTH SOLUTION [Concomitant]
     Indication: EYE LUBRICATION THERAPY
     Route: 061
  2. ATENOLOL [Concomitant]
     Indication: HYPERTENSION
     Dosage: 15 MG
     Route: 048
  3. PRADAXA [Suspect]
     Indication: ATRIAL FIBRILLATION
     Dosage: 300 MG
     Route: 048
     Dates: start: 20111216
  4. BRIMONIDINE TARTRATE [Concomitant]
     Indication: GLAUCOMA
     Route: 061
  5. COSOPT (DORZOLAMIDE) [Concomitant]
     Indication: GLAUCOMA
     Route: 061
  6. TRAVATAN [Concomitant]
     Indication: GLAUCOMA
     Route: 061

REACTIONS (3)
  - DIARRHOEA [None]
  - HEART RATE DECREASED [None]
  - CHROMATURIA [None]
